FAERS Safety Report 8443274-2 (Version None)
Quarter: 2012Q2

REPORT INFORMATION
  Report Type: 
  Country: None (occurrence: None)
  Receive Date: 20120617
  Receipt Date: 20120611
  Transmission Date: 20120825
  Serious: Yes (Death, Hospitalization, Other)
  Sender: FDA-Public Use
  Company Number: US-TEVA-342779USA

PATIENT
  Age: 86 Year
  Sex: Female

DRUGS (2)
  1. CARBAMAZEPINE [Suspect]
     Dosage: 100 MILLIGRAM; STARTED 2 DAYS PRIOR TO EVENT ONSET
  2. HYDRALAZINE HYDROCHLORIDE [Suspect]
     Indication: HYPERTENSION
     Dosage: TAKING FOR 2 YEARS (800 MG 3 TIMES/DAY FOR THE PAST 8 MONTHS)

REACTIONS (6)
  - ACUTE FEBRILE NEUTROPHILIC DERMATOSIS [None]
  - INSOMNIA [None]
  - DEATH [None]
  - FATIGUE [None]
  - RENAL FAILURE ACUTE [None]
  - ANXIETY [None]
